FAERS Safety Report 8165145-1 (Version None)
Quarter: 2012Q1

REPORT INFORMATION
  Report Type: 
  Country: None (occurrence: None)
  Receive Date: 20120227
  Receipt Date: 20120224
  Transmission Date: 20120608
  Serious: No
  Sender: FDA-Public Use
  Company Number: US-PFIZER INC-2012050015

PATIENT
  Sex: Female

DRUGS (6)
  1. CHANTIX [Suspect]
     Dosage: 1 MG, 2X/DAY
     Route: 048
     Dates: end: 20110101
  2. CHANTIX [Suspect]
     Dosage: UNK
     Route: 048
  3. LEVOTHYROXINE [Concomitant]
     Indication: THYROID DISORDER
     Dosage: UNK
  4. CHANTIX [Suspect]
     Indication: SMOKING CESSATION THERAPY
     Dosage: 0.5 MG, 1X/DAY
     Route: 048
  5. LITHOBID [Concomitant]
     Indication: BIPOLAR DISORDER
     Dosage: 300 MG, 3X/DAY
  6. OMEPRAZOLE [Concomitant]
     Indication: GASTROOESOPHAGEAL REFLUX DISEASE
     Dosage: 20 MG, 2X/DAY

REACTIONS (8)
  - FEELING ABNORMAL [None]
  - BLOOD CHOLESTEROL INCREASED [None]
  - ABNORMAL DREAMS [None]
  - MALAISE [None]
  - FATIGUE [None]
  - LOW DENSITY LIPOPROTEIN ABNORMAL [None]
  - ARTHRALGIA [None]
  - SLEEP APNOEA SYNDROME [None]
